FAERS Safety Report 13058329 (Version 2)
Quarter: 2017Q1

REPORT INFORMATION
  Report Type: Spontaneous
  Country: US (occurrence: US)
  Receive Date: 20161223
  Receipt Date: 20170110
  Transmission Date: 20170428
  Serious: Yes (Congenital Anomaly, Other)
  Sender: FDA-Public Use
  Company Number: PHEH2016US033369

PATIENT
  Sex: Male

DRUGS (1)
  1. ZOFRAN [Suspect]
     Active Substance: ONDANSETRON HYDROCHLORIDE
     Indication: FOETAL EXPOSURE DURING PREGNANCY
     Route: 064

REACTIONS (11)
  - Hydronephrosis [Unknown]
  - Hypertension neonatal [Unknown]
  - Atrial septal defect [Unknown]
  - Single functional kidney [Unknown]
  - Cardiac murmur [Unknown]
  - Rash [Unknown]
  - Jaundice neonatal [Unknown]
  - Foetal exposure during pregnancy [Unknown]
  - Pulmonary valve stenosis [Unknown]
  - Renal aplasia [Unknown]
  - Ventricular septal defect [Unknown]
